FAERS Safety Report 5297218-5 (Version None)
Quarter: 2007Q2

REPORT INFORMATION
  Report Type: 
  Country: None (occurrence: None)
  Receive Date: 20070416
  Receipt Date: 20070404
  Transmission Date: 20071010
  Serious: Yes (Hospitalization, Other)
  Sender: FDA-Public Use
  Company Number: DE-JNJFOC-20070101375

PATIENT
  Sex: Male

DRUGS (3)
  1. REMICADE [Suspect]
     Indication: PSORIATIC ARTHROPATHY
     Route: 042
  2. REMICADE [Suspect]
     Indication: PUSTULAR PSORIASIS
     Dosage: 3/4 INFUSION
     Route: 042
  3. CARMEN [Concomitant]
     Indication: HYPERTENSION
     Route: 065

REACTIONS (5)
  - BRONCHIAL CARCINOMA [None]
  - CEREBRAL INFARCTION [None]
  - DRUG INEFFECTIVE [None]
  - GASTROINTESTINAL DISORDER [None]
  - PROSTATE CANCER [None]
